FAERS Safety Report 7763657-3 (Version None)
Quarter: 2011Q3

REPORT INFORMATION
  Report Type: 
  Country: None (occurrence: None)
  Receive Date: 20110921
  Receipt Date: 20061016
  Transmission Date: 20111222
  Serious: No
  Sender: FDA-Public Use
  Company Number: 2006BI014988

PATIENT
  Sex: Female

DRUGS (3)
  1. TYSABRI [Suspect]
     Indication: MULTIPLE SCLEROSIS
     Route: 042
     Dates: start: 20060829, end: 20061005
  2. TYSABRI [Suspect]
     Route: 042
     Dates: start: 20091110
  3. AVONEX [Concomitant]
     Indication: MULTIPLE SCLEROSIS
     Route: 030
     Dates: start: 19960101

REACTIONS (5)
  - BALANCE DISORDER [None]
  - FEELING ABNORMAL [None]
  - RESPIRATORY TRACT INFECTION [None]
  - LAZINESS [None]
  - HEADACHE [None]
